FAERS Safety Report 9399242 (Version 3)
Quarter: 2013Q3

REPORT INFORMATION
  Report Type: Report from Study
  Country: FR (occurrence: FR)
  Receive Date: 20130715
  Receipt Date: 20130813
  Transmission Date: 20140515
  Serious: Yes (Hospitalization)
  Sender: FDA-Public Use
  Company Number: FR-ROCHE-1244382

PATIENT
  Age: 88 Year
  Sex: Female
  Weight: 64 kg

DRUGS (10)
  1. VISMODEGIB [Suspect]
     Indication: BASAL CELL CARCINOMA
     Dosage: LAST DOSE PRIOR TO SAE: 5/JUN/2013
     Route: 048
     Dates: start: 20130411
  2. LACTULOSE [Concomitant]
     Indication: CONSTIPATION
     Route: 065
     Dates: start: 20130412, end: 20130413
  3. LACTULOSE [Concomitant]
     Route: 065
     Dates: start: 20130414
  4. DOLIPRANE [Concomitant]
     Indication: INTERVERTEBRAL DISC COMPRESSION
     Route: 065
     Dates: start: 20130505
  5. GAVISCON (FRANCE) [Concomitant]
     Indication: VOMITING
     Route: 048
     Dates: start: 20130523
  6. AUGMENTIN [Concomitant]
     Route: 065
     Dates: start: 20130614, end: 20130620
  7. CONTRAMAL [Concomitant]
     Route: 065
     Dates: start: 20130614, end: 20130618
  8. MIOREL (FRANCE) [Concomitant]
     Route: 065
     Dates: start: 20130618, end: 20130628
  9. DOLIPRANE [Concomitant]
     Route: 065
     Dates: start: 20130618, end: 20130628
  10. TOPALGIC (FRANCE) [Concomitant]
     Route: 065
     Dates: start: 20130618, end: 20130628

REACTIONS (1)
  - Cholecystitis acute [Recovered/Resolved]
